FAERS Safety Report 25312890 (Version 1)
Quarter: 2025Q2

REPORT INFORMATION
  Report Type: Spontaneous
  Country: US (occurrence: US)
  Receive Date: 20250514
  Receipt Date: 20250514
  Transmission Date: 20250716
  Serious: Yes (Other)
  Sender: ELI LILLY AND COMPANY
  Company Number: US-ELI_LILLY_AND_COMPANY-US202505003127

PATIENT
  Age: 83 Year
  Sex: Female

DRUGS (1)
  1. FORTEO [Suspect]
     Active Substance: TERIPARATIDE
     Indication: Product used for unknown indication
     Route: 065

REACTIONS (6)
  - Macular degeneration [Unknown]
  - Rheumatoid arthritis [Unknown]
  - Lower limb fracture [Unknown]
  - Bradykinesia [Unknown]
  - Product dose omission issue [Unknown]
  - Multiple use of single-use product [Unknown]
